FAERS Safety Report 18231074 (Version 1)
Quarter: 2020Q3

REPORT INFORMATION
  Report Type: Spontaneous
  Country: DE (occurrence: DE)
  Receive Date: 20200904
  Receipt Date: 20200904
  Transmission Date: 20201103
  Serious: Yes (Hospitalization, Other)
  Sender: FDA-Public Use
  Company Number: DE-HETERO-HET2020DE00947

PATIENT
  Age: 15 Year
  Sex: Female
  Weight: 61 kg

DRUGS (2)
  1. EVALUNA [Concomitant]
     Active Substance: ETHINYL ESTRADIOL\LEVONORGESTREL
     Indication: PRODUCT USED FOR UNKNOWN INDICATION
     Dosage: 1 DOSAGE FORM, QD (1 DF DOSAGE FORM EVERY DAYS)
     Route: 065
  2. LEVETIRACETAM. [Suspect]
     Active Substance: LEVETIRACETAM
     Indication: EPILEPSY
     Dosage: 4 DOSAGE FORM, QD (4 DF DOSAGE FORM EVERY DAYS 2 SEPARATED DOSES )
     Route: 065

REACTIONS (3)
  - Treatment noncompliance [Recovering/Resolving]
  - Anticonvulsant drug level decreased [Recovering/Resolving]
  - Seizure [Recovering/Resolving]

NARRATIVE: CASE EVENT DATE: 20190714
